FAERS Safety Report 14987435 (Version 4)
Quarter: 2018Q3

REPORT INFORMATION
  Report Type: Spontaneous
  Country: US (occurrence: US)
  Receive Date: 20180608
  Receipt Date: 20180715
  Transmission Date: 20181010
  Serious: No
  Sender: FDA-Public Use
  Company Number: US-JNJFOC-20180530767

PATIENT
  Sex: Female

DRUGS (5)
  1. STELARA [Suspect]
     Active Substance: USTEKINUMAB
     Indication: PRODUCT USED FOR UNKNOWN INDICATION
     Route: 058
     Dates: start: 201403, end: 201610
  2. COSENTYX [Concomitant]
     Active Substance: SECUKINUMAB
     Route: 065
     Dates: start: 201611, end: 201712
  3. HUMIRA [Concomitant]
     Active Substance: ADALIMUMAB
     Indication: PSORIATIC ARTHROPATHY
     Route: 058
     Dates: start: 201511, end: 201603
  4. OTEZLA [Concomitant]
     Active Substance: APREMILAST
     Route: 058
     Dates: start: 201407, end: 201712
  5. COSENTYX [Concomitant]
     Active Substance: SECUKINUMAB
     Route: 065
     Dates: start: 201411, end: 201611

REACTIONS (1)
  - Drug ineffective [Unknown]
